FAERS Safety Report 13435342 (Version 1)
Quarter: 2017Q2

REPORT INFORMATION
  Report Type: Spontaneous
  Country: US (occurrence: US)
  Receive Date: 20170412
  Receipt Date: 20170412
  Transmission Date: 20170830
  Serious: No
  Sender: FDA-Public Use
  Company Number: US-SA-2016SA081555

PATIENT
  Age: 79 Year
  Sex: Female
  Weight: 130 kg

DRUGS (1)
  1. ALLEGRA ALLERGY [Suspect]
     Active Substance: FEXOFENADINE HYDROCHLORIDE
     Indication: SEASONAL ALLERGY
     Dosage: START DATE: 1-2 YEAR AGO?STOP DATE; APPROX 1 1/2 MONTHS AGO
     Route: 048

REACTIONS (2)
  - Extra dose administered [Unknown]
  - Drug effect decreased [Unknown]
